FAERS Safety Report 5611720-5 (Version None)
Quarter: 2008Q1

REPORT INFORMATION
  Report Type: 
  Country: None (occurrence: None)
  Receive Date: 20080201
  Receipt Date: 20080124
  Transmission Date: 20080703
  Serious: Yes (Hospitalization)
  Sender: FDA-Public Use
  Company Number: GR-MERCK-0801USA05977

PATIENT
  Sex: Male
  Weight: 1 kg

DRUGS (7)
  1. CANCIDAS [Suspect]
     Indication: CANDIDIASIS
     Route: 042
  2. CANCIDAS [Suspect]
     Route: 042
  3. AMPHOTERICIN B AND CHOLESTEROL AND DISTEAROYLPHOSPHATIDYLGLYCEROL AND [Concomitant]
     Indication: CANDIDIASIS
     Route: 065
  4. AMPICILLIN [Concomitant]
     Indication: STAPHYLOCOCCAL INFECTION
     Route: 042
  5. GENTAMICIN [Concomitant]
     Indication: STAPHYLOCOCCAL INFECTION
     Route: 042
  6. MEROPENEM [Concomitant]
     Indication: STAPHYLOCOCCAL INFECTION
     Route: 042
  7. TEICOPLANIN [Concomitant]
     Indication: STAPHYLOCOCCAL INFECTION
     Route: 042

REACTIONS (3)
  - DRUG INEFFECTIVE [None]
  - ENDOCARDITIS [None]
  - MYCETOMA MYCOTIC [None]
